FAERS Safety Report 7793644 (Version 4)
Quarter: 2014Q3

REPORT INFORMATION
  Report Type: Report from Study
  Country: US (occurrence: US)
  Receive Date: 20110201
  Receipt Date: 20140825
  Transmission Date: 20150326
  Serious: Yes (Hospitalization)
  Sender: FDA-Public Use
  Company Number: US-BIOGENIDEC-2011BI003003

PATIENT
  Age: 57 Year
  Sex: Female
  Weight: 96 kg

DRUGS (4)
  1. TYSABRI [Suspect]
     Active Substance: NATALIZUMAB
     Indication: MULTIPLE SCLEROSIS
     Route: 042
     Dates: start: 2002
  2. TAMBOCOR [Concomitant]
     Active Substance: FLECAINIDE ACETATE
  3. CYANOCOBALAMIN. [Concomitant]
     Active Substance: CYANOCOBALAMIN
     Route: 058
  4. ULTRACET [Concomitant]
     Active Substance: ACETAMINOPHEN\TRAMADOL HYDROCHLORIDE

REACTIONS (4)
  - Sciatica [Not Recovered/Not Resolved]
  - Lumbar radiculopathy [Recovered/Resolved]
  - Pain in extremity [Not Recovered/Not Resolved]
  - Back injury [Not Recovered/Not Resolved]

NARRATIVE: CASE EVENT DATE: 201101
